FAERS Safety Report 8472620-9 (Version None)
Quarter: 2012Q2

REPORT INFORMATION
  Report Type: 
  Country: None (occurrence: None)
  Receive Date: 20120627
  Receipt Date: 20120413
  Transmission Date: 20120825
  Serious: No
  Sender: FDA-Public Use
  Company Number: US-AMGEN-USASP2012024180

PATIENT
  Age: 77 Year
  Sex: Female
  Weight: 69 kg

DRUGS (1)
  1. PROCRIT [Suspect]
     Indication: HAEMOGLOBIN
     Dosage: UNK
     Dates: start: 20040101, end: 20100101

REACTIONS (2)
  - ENERGY INCREASED [None]
  - HAEMOGLOBIN DECREASED [None]
